FAERS Safety Report 7322676-1 (Version None)
Quarter: 2011Q1

REPORT INFORMATION
  Report Type: 
  Country: None (occurrence: None)
  Receive Date: 20110301
  Receipt Date: 20110224
  Transmission Date: 20110831
  Serious: Yes (Other)
  Sender: FDA-Public Use
  Company Number: US-PFIZER INC-2009231012

PATIENT
  Sex: Female
  Weight: 61.23 kg

DRUGS (5)
  1. CHANTIX [Suspect]
     Dosage: 0.5 MG, 1X/DAY
     Route: 048
     Dates: start: 20101229
  2. PREMARIN [Concomitant]
     Dosage: UNK
  3. CHANTIX [Suspect]
     Indication: SMOKING CESSATION THERAPY
     Dosage: 0.5 MG, 1X/DAY
     Route: 048
     Dates: start: 20090501
  4. LEXAPRO [Concomitant]
     Indication: MENOPAUSAL DEPRESSION
     Dosage: UNK
  5. CHANTIX [Suspect]
     Dosage: 1 MG, 2X/DAY
     Route: 048
     Dates: end: 20110101

REACTIONS (1)
  - PSYCHOTIC DISORDER [None]
